FAERS Safety Report 11780040 (Version 1)
Quarter: 2015Q4

REPORT INFORMATION
  Report Type: Spontaneous
  Country: US (occurrence: US)
  Receive Date: 20151125
  Receipt Date: 20151125
  Transmission Date: 20160304
  Serious: No
  Sender: FDA-Public Use
  Company Number: US-BRISTOL-MYERS SQUIBB COMPANY-BMS-2015-081385

PATIENT
  Age: 33 Year
  Sex: Female

DRUGS (3)
  1. ABILIFY MAINTENA [Suspect]
     Active Substance: ARIPIPRAZOLE
     Indication: HYPOMANIA
     Dosage: 300 MG, UNK
     Route: 065
     Dates: start: 20150901
  2. ABILIFY [Suspect]
     Active Substance: ARIPIPRAZOLE
     Indication: MENTAL RETARDATION
     Dosage: 5 MG, UNK
     Route: 065
  3. DEPAKINE                           /00228501/ [Suspect]
     Active Substance: VALPROIC ACID
     Indication: MENTAL RETARDATION
     Route: 065

REACTIONS (2)
  - Sedation [Unknown]
  - Off label use [Unknown]
